FAERS Safety Report 13433030 (Version 1)
Quarter: 2017Q2

REPORT INFORMATION
  Report Type: Not Available
  Country: US (occurrence: US)
  Receive Date: 20170412
  Receipt Date: 20170412
  Transmission Date: 20170830
  Serious: Yes (Other)
  Sender: FDA-Public Use
  Company Number: US-ANIPHARMA-2017-US-003720

PATIENT
  Age: 13 Year
  Sex: 0

DRUGS (5)
  1. SILDENAFIL. [Suspect]
     Active Substance: SILDENAFIL
  2. NICARDIPINE HYDROCHLORIDE (NON-SPECIFIC) [Suspect]
     Active Substance: NICARDIPINE HYDROCHLORIDE
     Route: 065
  3. CIPROFLOXACIN. [Suspect]
     Active Substance: CIPROFLOXACIN
  4. ONDANSETRON [Suspect]
     Active Substance: ONDANSETRON
     Route: 065
  5. MILRINONE [Suspect]
     Active Substance: MILRINONE

REACTIONS (2)
  - Ventricular tachyarrhythmia [Unknown]
  - Electrocardiogram QT prolonged [Unknown]
